FAERS Safety Report 6437924-X (Version None)
Quarter: 2009Q4

REPORT INFORMATION
  Report Type: 
  Country: None (occurrence: None)
  Receive Date: 20091112
  Receipt Date: 20091103
  Transmission Date: 20100525
  Serious: Yes (Hospitalization)
  Sender: FDA-Public Use
  Company Number: PL-PFIZER INC-2009294055

PATIENT
  Age: 76 Year
  Sex: Female
  Weight: 78 kg

DRUGS (6)
  1. TOLTERODINE TARTRATE [Suspect]
     Dosage: 4 MG, UNK
     Route: 048
     Dates: start: 20081029, end: 20090105
  2. VINPOCETINE [Concomitant]
     Dosage: UNK
     Dates: start: 20050101
  3. MOLSIDOMINE [Concomitant]
     Dosage: UNK
     Dates: start: 19990101
  4. ATENOLOL [Concomitant]
     Dosage: UNK
     Dates: start: 20030101
  5. ACETYLSALICYLIC ACID [Concomitant]
     Dosage: UNK
     Dates: start: 20030101
  6. GLYCERYL TRINITRATE [Concomitant]
     Dosage: UNK

REACTIONS (1)
  - HYPERTENSION [None]
